FAERS Safety Report 8769802 (Version 3)
Quarter: 2012Q4

REPORT INFORMATION
  Report Type: Report from Study
  Country: JP (occurrence: JP)
  Receive Date: 20120907
  Receipt Date: 20121107
  Transmission Date: 20130627
  Serious: Yes (Death, Life-Threatening)
  Sender: FDA-Public Use
  Company Number: JP-EISAI INC-E7389-01544-SPO-JP

PATIENT
  Age: 49 Year
  Sex: Female
  Weight: 57 kg

DRUGS (11)
  1. HALAVEN [Suspect]
     Indication: BREAST CANCER RECURRENT
     Route: 042
     Dates: start: 20110905, end: 20110905
  2. HALAVEN [Suspect]
     Indication: METASTASES TO LIVER
  3. HALAVEN [Suspect]
     Indication: METASTASES TO BONE
  4. LASIX [Concomitant]
     Route: 048
  5. MAINTATE [Concomitant]
     Route: 048
  6. BLOPRESS [Concomitant]
     Route: 048
  7. ALDCATONE A [Concomitant]
     Route: 048
  8. METHYCOBAL [Concomitant]
     Route: 048
  9. JUVELA NICOTINATE [Concomitant]
     Route: 048
  10. MAGNESIUM OXIDE [Concomitant]
     Route: 048
  11. MORPHINE HYDROCHLORIDE [Concomitant]
     Route: 041

REACTIONS (2)
  - Tumour lysis syndrome [Recovering/Resolving]
  - Malignant neoplasm progression [Fatal]
